FAERS Safety Report 7900255-2 (Version None)
Quarter: 2011Q4

REPORT INFORMATION
  Report Type: 
  Country: None (occurrence: None)
  Receive Date: 20111108
  Receipt Date: 20111026
  Transmission Date: 20120403
  Serious: Yes (Other)
  Sender: FDA-Public Use
  Company Number: CH-JNJFOC-20111101820

PATIENT
  Age: 57 Year
  Sex: Female

DRUGS (10)
  1. TRAMADOL HCL [Concomitant]
     Route: 065
  2. PROPYPHENAZONE [Concomitant]
     Indication: PAIN
     Route: 065
  3. PALEXIA [Suspect]
     Indication: RADICULAR PAIN
     Route: 048
     Dates: start: 20111021, end: 20111025
  4. DROFENINE HYDROCHLORIDE [Concomitant]
     Indication: PAIN
     Route: 065
  5. TRAMADOL HYDROCHLORIDE [Concomitant]
     Indication: RADICULAR PAIN
     Dosage: 2/DAY
     Route: 065
     Dates: end: 20111020
  6. TRAMADOL HCL [Concomitant]
     Dosage: 1 DF, 2/DAY
     Route: 065
     Dates: end: 20111020
  7. ARCOXIA [Concomitant]
     Indication: OSTEOARTHRITIS
     Route: 065
  8. TRAMADOL HYDROCHLORIDE [Concomitant]
     Route: 065
  9. EFFEXOR [Concomitant]
     Indication: DEPRESSION
     Route: 065
  10. ALLOBARBITAL [Concomitant]
     Indication: PAIN
     Route: 065

REACTIONS (5)
  - SOMNOLENCE [None]
  - DRUG INEFFECTIVE [None]
  - DIZZINESS [None]
  - SUICIDAL IDEATION [None]
  - AGGRESSION [None]
